FAERS Safety Report 17231017 (Version 2)
Quarter: 2020Q1

REPORT INFORMATION
  Report Type: Spontaneous
  Country: GB (occurrence: GB)
  Receive Date: 20200103
  Receipt Date: 20200303
  Transmission Date: 20200409
  Serious: Yes (Other)
  Sender: FDA-Public Use
  Company Number: NVSC2019GB044200

PATIENT
  Age: 81 Year
  Sex: Male

DRUGS (6)
  1. PROCRIN [Suspect]
     Active Substance: LEUPROLIDE ACETATE
     Indication: PRODUCT USED FOR UNKNOWN INDICATION
     Dosage: 11.25 MG (11.25 MILLIGRAM)
     Route: 058
  2. PREDNISOLONE. [Suspect]
     Active Substance: PREDNISOLONE
     Indication: PROSTATE CANCER METASTATIC
     Dosage: 10 MG, QD (10 MILLIGRAM, QD)
     Route: 048
  3. ZYTIGA [Suspect]
     Active Substance: ABIRATERONE ACETATE
     Indication: PROSTATE CANCER METASTATIC
     Dosage: 1 G, QD (1 GRAM, QD)
     Route: 048
     Dates: start: 201907, end: 20190906
  4. TAMSULOSIN [Suspect]
     Active Substance: TAMSULOSIN
     Indication: POLLAKIURIA
     Dosage: 400 UG, QD (400 MICROGRAM, QD)
     Route: 048
  5. LEUPRORELIN [Suspect]
     Active Substance: LEUPROLIDE ACETATE
     Indication: PROSTATE CANCER METASTATIC
     Dosage: 11.25 MG (11.25 MILLIGRAM)
     Route: 058
  6. LUPRON DEPOT [Suspect]
     Active Substance: LEUPROLIDE ACETATE
     Indication: PROSTATE CANCER METASTATIC
     Dosage: 11.25 MG
     Route: 058

REACTIONS (1)
  - Alanine aminotransferase increased [Recovered/Resolved]

NARRATIVE: CASE EVENT DATE: 20190906
